FAERS Safety Report 9640050 (Version 3)
Quarter: 2013Q4

REPORT INFORMATION
  Report Type: Report from Study
  Country: CA (occurrence: CA)
  Receive Date: 20131023
  Receipt Date: 20131025
  Transmission Date: 20140711
  Serious: Yes (Death)
  Sender: FDA-Public Use
  Company Number: PHHY2012CA099937

PATIENT
  Age: 24 Year
  Sex: Male

DRUGS (8)
  1. CLOZARIL [Suspect]
     Indication: SCHIZOPHRENIA
     Dosage: 75 MG, DAILY
     Route: 048
     Dates: start: 20070704, end: 20121024
  2. CLOZARIL [Suspect]
     Dosage: UNK
     Route: 048
     Dates: start: 20130314
  3. CLOZARIL [Suspect]
     Dosage: 75 MG, DAILY
     Route: 048
     Dates: end: 20131003
  4. LITHIUM [Concomitant]
     Dosage: 600 MG
  5. ABILIFY [Concomitant]
     Dosage: 1 MG, BID
  6. EFEXOR XR [Concomitant]
     Dosage: 75 MG, BID
  7. TECTA [Concomitant]
     Dosage: 40 MG, BID
  8. CRESTOR [Concomitant]
     Dosage: 10 MG, BID

REACTIONS (2)
  - Completed suicide [Fatal]
  - Neutropenia [Unknown]
